FAERS Safety Report 11357108 (Version 1)
Quarter: 2015Q3

REPORT INFORMATION
  Report Type: Spontaneous
  Country: US (occurrence: US)
  Receive Date: 20150803
  Receipt Date: 20150803
  Transmission Date: 20151125
  Serious: No
  Sender: FDA-Public Use
  Company Number: US-ELI_LILLY_AND_COMPANY-US200910007347

PATIENT
  Age: 26 Year
  Sex: Female

DRUGS (5)
  1. ZOLOFT [Concomitant]
     Active Substance: SERTRALINE HYDROCHLORIDE
     Indication: DEPRESSION
  2. BUSPAR [Concomitant]
     Active Substance: BUSPIRONE HYDROCHLORIDE
  3. NEXIUM [Concomitant]
     Active Substance: ESOMEPRAZOLE MAGNESIUM
     Indication: GASTROOESOPHAGEAL REFLUX DISEASE
  4. ZYPREXA [Suspect]
     Active Substance: OLANZAPINE
     Dosage: 5 MG, QD
     Dates: start: 20050316, end: 20060810
  5. WELLBUTRIN [Concomitant]
     Active Substance: BUPROPION HYDROCHLORIDE
     Indication: DEPRESSION

REACTIONS (8)
  - Sleep apnoea syndrome [Unknown]
  - Hypertension [Unknown]
  - Diabetes mellitus [Unknown]
  - Conjunctivitis [Unknown]
  - Urinary tract infection [Unknown]
  - Tooth abscess [Unknown]
  - Weight increased [Recovering/Resolving]
  - Otitis media [Unknown]

NARRATIVE: CASE EVENT DATE: 20050608
